FAERS Safety Report 12770197 (Version 1)
Quarter: 2016Q3

REPORT INFORMATION
  Report Type: Spontaneous
  Country: None (occurrence: US)
  Receive Date: 20160915
  Receipt Date: 20160915
  Transmission Date: 20161109
  Serious: No
  Sender: FDA-Public Use
  Company Number: None

PATIENT
  Age: 38 Year
  Sex: Female

DRUGS (2)
  1. HUMIRA [Suspect]
     Active Substance: ADALIMUMAB
     Indication: PRODUCT USED FOR UNKNOWN INDICATION
     Dosage: 40MG EVERY 7 DAYS SUBCUTANEOUSLY
     Route: 058
     Dates: start: 20160413
  2. HUMIRA [Suspect]
     Active Substance: ADALIMUMAB
     Indication: MALAISE
     Dosage: 40MG EVERY 7 DAYS SUBCUTANEOUSLY
     Route: 058
     Dates: start: 20160413

REACTIONS (1)
  - Alopecia [None]

NARRATIVE: CASE EVENT DATE: 20160801
